FAERS Safety Report 7378104-3 (Version None)
Quarter: 2011Q1

REPORT INFORMATION
  Report Type: 
  Country: None (occurrence: None)
  Receive Date: 20110328
  Receipt Date: 20110314
  Transmission Date: 20110831
  Serious: Yes (Life-Threatening)
  Sender: FDA-Public Use
  Company Number: FR-JNJFOC-20110306512

PATIENT
  Age: 49 Year
  Sex: Male

DRUGS (6)
  1. SOLUPRED [Concomitant]
     Indication: PREMEDICATION
     Dosage: 15 MG PER DAY 3 DAYS BEFORE CYCLE
  2. INFLIXIMAB, RECOMBINANT [Suspect]
     Dosage: 5 MG/KG DEPENDING ON THE CYCLE
     Route: 042
  3. INFLIXIMAB, RECOMBINANT [Suspect]
     Indication: CROHN'S DISEASE
     Dosage: 5TH DOSE
     Route: 042
  4. INFLIXIMAB, RECOMBINANT [Suspect]
     Route: 042
  5. HYDROCORTISONE [Concomitant]
     Indication: PREMEDICATION
     Dosage: 100 MG 30 MINUTES PRIOR TO INFLIXIMAB
  6. ATARAX [Concomitant]
     Indication: PREMEDICATION
     Dosage: 30 MINUTES BEFORE INFLIXIMAB

REACTIONS (7)
  - HYPERSENSITIVITY [None]
  - DYSPNOEA [None]
  - COUGH [None]
  - ABDOMINAL PAIN [None]
  - INFUSION RELATED REACTION [None]
  - TACHYCARDIA [None]
  - HYPOTENSION [None]
